FAERS Safety Report 4577105-8 (Version None)
Quarter: 2005Q1

REPORT INFORMATION
  Report Type: 
  Country: None (occurrence: None)
  Receive Date: 20050208
  Receipt Date: 20050126
  Transmission Date: 20050727
  Serious: Yes (Death)
  Sender: FDA-Public Use
  Company Number: HQWYE165129OCT04

PATIENT
  Age: 40 Year
  Sex: Female
  Weight: 129.39 kg

DRUGS (13)
  1. EFFEXOR [Suspect]
     Dosage: 150 MG TWICE DAILY AND 75 MG AT HS, ORAL
     Route: 048
  2. MORPHINE SULFATE [Suspect]
     Indication: PAIN
     Dosage: 20 MG 1X PER 1 TOT, INTRAMUSCULAR
     Route: 030
     Dates: start: 20040608, end: 20040608
  3. SEROQUEL [Suspect]
     Dosage: 100 MG 1X PER 1 DAY
  4. VICODIN [Suspect]
     Indication: PAIN
     Dates: start: 20040608
  5. TRAZODONE (TRAZODONE) [Concomitant]
  6. TOPAMAX [Concomitant]
  7. FLEXERIL [Concomitant]
  8. ZETIA (EZETIMIBE0 [Concomitant]
  9. SINGULAIR [Concomitant]
  10. METFORMIN HCL [Concomitant]
  11. ACTOS [Concomitant]
  12. COZAAR [Concomitant]
  13. LOVASTATIN [Concomitant]

REACTIONS (19)
  - BACK PAIN [None]
  - BLOOD CHLORIDE INCREASED [None]
  - BLOOD GLUCOSE INCREASED [None]
  - BLOOD OSMOLARITY INCREASED [None]
  - CARDIAC FAILURE [None]
  - CARDIOMEGALY [None]
  - COSTOVERTEBRAL ANGLE TENDERNESS [None]
  - DILATATION VENTRICULAR [None]
  - DRUG INTERACTION [None]
  - DRUG LEVEL INCREASED [None]
  - DRUG SCREEN POSITIVE [None]
  - ELECTROCARDIOGRAM QT PROLONGED [None]
  - HEPATIC STEATOSIS [None]
  - NAUSEA [None]
  - OBESITY [None]
  - PELVIC PAIN [None]
  - PULMONARY OEDEMA [None]
  - URETERAL STENT INSERTION [None]
  - VOMITING [None]
